FAERS Safety Report 4410719-4 (Version None)
Quarter: 2004Q3

REPORT INFORMATION
  Report Type: 
  Country: None (occurrence: None)
  Receive Date: 20040726
  Receipt Date: 20040712
  Transmission Date: 20050211
  Serious: Yes (Hospitalization)
  Sender: FDA-Public Use
  Company Number: US-JNJFOC-20040703491

PATIENT
  Age: 58 Year
  Sex: Female
  Weight: 56.6996 kg

DRUGS (12)
  1. INFLIXIMAB (INFLIXIMAB, RECOMBINANT) LYOPHILIZED POWDER [Suspect]
     Indication: CROHN'S DISEASE
     Dosage: PATIENT RECIEVED 10 INFUSIONS OF INFLIXIMAB PRIOR TO TREAT, 5 MG/KG, INTRAVENOUS
     Route: 042
     Dates: start: 20031020
  2. INFLIXIMAB (INFLIXIMAB, RECOMBINANT) LYOPHILIZED POWDER [Suspect]
     Indication: CROHN'S DISEASE
     Dosage: PATIENT RECIEVED 10 INFUSIONS OF INFLIXIMAB PRIOR TO TREAT, 5 MG/KG, INTRAVENOUS
     Route: 042
     Dates: start: 20031117
  3. INFLIXIMAB (INFLIXIMAB, RECOMBINANT) LYOPHILIZED POWDER [Suspect]
     Indication: CROHN'S DISEASE
     Dosage: PATIENT RECIEVED 10 INFUSIONS OF INFLIXIMAB PRIOR TO TREAT, 5 MG/KG, INTRAVENOUS
     Route: 042
     Dates: start: 20031229
  4. INFLIXIMAB (INFLIXIMAB, RECOMBINANT) LYOPHILIZED POWDER [Suspect]
     Indication: CROHN'S DISEASE
     Dosage: PATIENT RECIEVED 10 INFUSIONS OF INFLIXIMAB PRIOR TO TREAT, 5 MG/KG, INTRAVENOUS
     Route: 042
     Dates: start: 20040201
  5. INFLIXIMAB (INFLIXIMAB, RECOMBINANT) LYOPHILIZED POWDER [Suspect]
     Indication: CROHN'S DISEASE
     Dosage: PATIENT RECIEVED 10 INFUSIONS OF INFLIXIMAB PRIOR TO TREAT, 5 MG/KG, INTRAVENOUS
     Route: 042
     Dates: start: 20040301
  6. INFLIXIMAB (INFLIXIMAB, RECOMBINANT) LYOPHILIZED POWDER [Suspect]
     Indication: CROHN'S DISEASE
     Dosage: PATIENT RECIEVED 10 INFUSIONS OF INFLIXIMAB PRIOR TO TREAT, 5 MG/KG, INTRAVENOUS
     Route: 042
     Dates: start: 20040401
  7. INFLIXIMAB (INFLIXIMAB, RECOMBINANT) LYOPHILIZED POWDER [Suspect]
     Indication: CROHN'S DISEASE
     Dosage: PATIENT RECIEVED 10 INFUSIONS OF INFLIXIMAB PRIOR TO TREAT, 5 MG/KG, INTRAVENOUS
     Route: 042
     Dates: start: 20040501
  8. INFLIXIMAB (INFLIXIMAB, RECOMBINANT) LYOPHILIZED POWDER [Suspect]
     Indication: CROHN'S DISEASE
     Dosage: PATIENT RECIEVED 10 INFUSIONS OF INFLIXIMAB PRIOR TO TREAT, 5 MG/KG, INTRAVENOUS
     Route: 042
     Dates: start: 20040612
  9. NARCOTIC ANALGESICS (ANALGESICS) [Suspect]
     Indication: CROHN'S DISEASE
  10. ANTIHISTAMINES (ANTIHISTAMINES) [Concomitant]
  11. STEROIDS (CORTICOSTEROID NOS) [Concomitant]
  12. ACETAMINOPHEN [Concomitant]

REACTIONS (3)
  - ARTHRITIS [None]
  - KNEE ARTHROPLASTY [None]
  - RASH [None]
